FAERS Safety Report 5446484-1 (Version None)
Quarter: 2007Q3

REPORT INFORMATION
  Report Type: 
  Country: None (occurrence: None)
  Receive Date: 20070907
  Receipt Date: 20070906
  Transmission Date: 20080115
  Serious: Yes (Life-Threatening, Hospitalization)
  Sender: FDA-Public Use
  Company Number: US-BRISTOL-MYERS SQUIBB COMPANY-13900030

PATIENT
  Age: 70 Year
  Sex: Female
  Weight: 71 kg

DRUGS (4)
  1. PACLITAXEL [Suspect]
     Indication: NON-SMALL CELL LUNG CANCER
     Dosage: 355 MG ONCE ON 18-JUN-2007 310 MG ONCE ON 09-JUL-2007 310 MG ONCE ON 30-JUL-2007
     Route: 042
     Dates: start: 20070618
  2. CARBOPLATIN [Suspect]
     Indication: NON-SMALL CELL LUNG CANCER
     Dosage: 645 MG ONCE ON 18-JUN-2007 480 MG ONCE ON 09-JUL-2007 375 MG ONCE ON 30-JUL-2007
     Route: 042
     Dates: start: 20070618
  3. NEULASTA [Concomitant]
     Dates: start: 20070807
  4. LEVAQUIN [Concomitant]
     Dates: start: 20070808

REACTIONS (3)
  - ATRIAL FIBRILLATION [None]
  - FEBRILE NEUTROPENIA [None]
  - PNEUMONIA [None]
